FAERS Safety Report 9915730 (Version 1)
Quarter: 2014Q1

REPORT INFORMATION
  Report Type: Spontaneous
  Country: US (occurrence: None)
  Receive Date: 20140219
  Receipt Date: 20140219
  Transmission Date: 20141002
  Serious: Yes (Life-Threatening, Disabling)
  Sender: FDA-Public Use
  Company Number: None

PATIENT
  Age: 62 Year
  Sex: Female
  Weight: 58.97 kg

DRUGS (11)
  1. GABAPENTIN [Suspect]
     Indication: FIBROMYALGIA
     Dosage: BEFORE BED INCREASE TO TWO
     Route: 048
     Dates: start: 20130924, end: 20130926
  2. GABAPENTIN [Suspect]
     Indication: POST HERPETIC NEURALGIA
     Dosage: BEFORE BED INCREASE TO TWO
     Route: 048
     Dates: start: 20130924, end: 20130926
  3. GABAPENTIN [Suspect]
     Indication: PAIN
     Dosage: BEFORE BED INCREASE TO TWO
     Route: 048
     Dates: start: 20130924, end: 20130926
  4. QUETIAPINE [Concomitant]
  5. ZOLPIDEM ER [Concomitant]
  6. NEXIUM [Concomitant]
  7. ARMOUR THYROID [Concomitant]
  8. CALCIUM [Concomitant]
  9. FLAXSEED OIL [Concomitant]
  10. MULTI-VIT [Concomitant]
  11. VIT B [Concomitant]

REACTIONS (2)
  - Headache [None]
  - Carbon monoxide poisoning [None]
